FAERS Safety Report 8559179-2 (Version None)
Quarter: 2012Q3

REPORT INFORMATION
  Report Type: 
  Country: None (occurrence: None)
  Receive Date: 20120802
  Receipt Date: 20120801
  Transmission Date: 20120928
  Serious: Yes (Hospitalization)
  Sender: FDA-Public Use
  Company Number: US-AMGEN-USASP2011060371

PATIENT
  Age: 54 Year
  Sex: Male

DRUGS (1)
  1. ENBREL [Suspect]
     Indication: PSORIATIC ARTHROPATHY
     Dosage: 50 MG, 2 TIMES/WK
     Dates: start: 20110401

REACTIONS (8)
  - ARTHRALGIA [None]
  - TOTAL LUNG CAPACITY DECREASED [None]
  - OROPHARYNGEAL PAIN [None]
  - GASTROINTESTINAL DISORDER [None]
  - BACK PAIN [None]
  - HEART RATE INCREASED [None]
  - KNEE ARTHROPLASTY [None]
  - RENAL PAIN [None]
